FAERS Safety Report 10308609 (Version 1)
Quarter: 2014Q3

REPORT INFORMATION
  Report Type: Spontaneous
  Country: GB (occurrence: GB)
  Receive Date: 20140716
  Receipt Date: 20140716
  Transmission Date: 20150326
  Serious: Yes (Other)
  Sender: FDA-Public Use
  Company Number: GB-GLAXOSMITHKLINE-B1012993A

PATIENT
  Age: 59 Year
  Sex: Male
  Weight: 106.13 kg

DRUGS (3)
  1. TAMSULOSIN [Concomitant]
     Active Substance: TAMSULOSIN
  2. STATINS [Concomitant]
     Active Substance: UNSPECIFIED INGREDIENT
  3. COMBODART [Suspect]
     Active Substance: DUTASTERIDE\TAMSULOSIN
     Indication: BENIGN PROSTATIC HYPERPLASIA
     Route: 048
     Dates: start: 20130201

REACTIONS (6)
  - Rash [Unknown]
  - Libido decreased [Not Recovered/Not Resolved]
  - Arthralgia [Unknown]
  - Erectile dysfunction [Not Recovered/Not Resolved]
  - Ejaculation disorder [Not Recovered/Not Resolved]
  - Abnormal weight gain [Unknown]
